FAERS Safety Report 16060415 (Version 1)
Quarter: 2019Q1

REPORT INFORMATION
  Report Type: Spontaneous
  Country: US (occurrence: US)
  Receive Date: 20190312
  Receipt Date: 20190312
  Transmission Date: 20190418
  Serious: Yes (Hospitalization, Other)
  Sender: FDA-Public Use
  Company Number: US-AUROBINDO-AUR-APL-2019-012531

PATIENT

DRUGS (2)
  1. TACROLIMUS. [Interacting]
     Active Substance: TACROLIMUS
     Indication: LIVER TRANSPLANT
     Dosage: UNK
     Route: 065
  2. ERTAPENEM. [Suspect]
     Active Substance: ERTAPENEM SODIUM
     Indication: BACTERAEMIA
     Dosage: 0.5 GRAM, EVERY OTHER DAY (REDUCED DOSE)
     Route: 042

REACTIONS (9)
  - Neurotoxicity [Recovering/Resolving]
  - Memory impairment [Recovering/Resolving]
  - Mental status changes [Recovering/Resolving]
  - Confusional state [Recovering/Resolving]
  - Personality change [Unknown]
  - Dysphonia [Recovering/Resolving]
  - Disturbance in attention [Recovering/Resolving]
  - Drug interaction [Unknown]
  - Asthenia [Unknown]
